FAERS Safety Report 24810371 (Version 1)
Quarter: 2025Q1

REPORT INFORMATION
  Report Type: Spontaneous
  Country: US (occurrence: US)
  Receive Date: 20250106
  Receipt Date: 20250106
  Transmission Date: 20250408
  Serious: No
  Sender: INSUD PHARMA
  Company Number: US-INSUD PHARMA-2412US10052

PATIENT

DRUGS (2)
  1. TESTOSTERONE [Suspect]
     Active Substance: TESTOSTERONE
     Indication: Hormone replacement therapy
     Route: 061
     Dates: start: 202411, end: 20241227
  2. TESTOSTERONE [Suspect]
     Active Substance: TESTOSTERONE
     Route: 061
     Dates: start: 202411, end: 2024

REACTIONS (3)
  - Hypoaesthesia [Recovered/Resolved]
  - Arthralgia [Recovered/Resolved]
  - Pain in extremity [Recovered/Resolved]

NARRATIVE: CASE EVENT DATE: 20241101
